FAERS Safety Report 5505185-1 (Version None)
Quarter: 2007Q4

REPORT INFORMATION
  Report Type: 
  Country: None (occurrence: None)
  Receive Date: 20071102
  Receipt Date: 20071023
  Transmission Date: 20080405
  Serious: Yes (Hospitalization)
  Sender: FDA-Public Use
  Company Number: US-BRISTOL-MYERS SQUIBB COMPANY-13952866

PATIENT
  Age: 60 Year
  Sex: Female
  Weight: 74 kg

DRUGS (4)
  1. CETUXIMAB [Suspect]
     Indication: NON-SMALL CELL LUNG CANCER
     Route: 042
     Dates: start: 20071011, end: 20071011
  2. CARBOPLATIN [Suspect]
     Indication: NON-SMALL CELL LUNG CANCER
     Route: 042
     Dates: start: 20071011, end: 20071011
  3. PACLITAXEL [Suspect]
     Indication: NON-SMALL CELL LUNG CANCER
     Route: 042
     Dates: start: 20071011, end: 20071011
  4. BEVACIZUMAB [Suspect]
     Indication: NON-SMALL CELL LUNG CANCER
     Route: 042
     Dates: start: 20071011, end: 20071011

REACTIONS (12)
  - ANOREXIA [None]
  - BLOOD ALBUMIN DECREASED [None]
  - DEHYDRATION [None]
  - FATIGUE [None]
  - FEBRILE NEUTROPENIA [None]
  - HAEMOGLOBIN DECREASED [None]
  - NEUROPATHY [None]
  - NEUTROPHIL COUNT DECREASED [None]
  - PROTEIN TOTAL DECREASED [None]
  - RASH [None]
  - STOMATITIS [None]
  - WHITE BLOOD CELL COUNT DECREASED [None]
